FAERS Safety Report 8477245-7 (Version None)
Quarter: 2012Q2

REPORT INFORMATION
  Report Type: 
  Country: None (occurrence: None)
  Receive Date: 20120619
  Receipt Date: 20120613
  Transmission Date: 20120825
  Serious: Yes (Life-Threatening)
  Sender: FDA-Public Use
  Company Number: 2012SP032744

PATIENT
  Age: 50 Year
  Sex: Male

DRUGS (1)
  1. VICTRELIS [Suspect]
     Indication: HEPATITIS C
     Dosage: 200 MG;TID;PO
     Route: 048

REACTIONS (1)
  - ASCITES [None]
